FAERS Safety Report 5119336-4 (Version None)
Quarter: 2006Q4

REPORT INFORMATION
  Report Type: 
  Country: None (occurrence: None)
  Receive Date: 20061002
  Receipt Date: 20061002
  Transmission Date: 20070319
  Serious: No
  Sender: FDA-Public Use
  Company Number: None

PATIENT

DRUGS (4)
  1. DEPAKOTE [Suspect]
     Dosage: TABLET, DELAYED RELEASE
  2. DEPAKOTE [Suspect]
     Dosage: TABLET, DELAYED RELEASE
  3. DEPAKOTE ER [Suspect]
     Dosage: TABLET, EXTENDED RELEASE
  4. DEPAKOTE ER [Suspect]
     Dosage: TABLET, EXTENDED RELEASE

REACTIONS (5)
  - COUGH [None]
  - DRUG DISPENSING ERROR [None]
  - GRAND MAL CONVULSION [None]
  - PYREXIA [None]
  - WRONG DRUG ADMINISTERED [None]
